FAERS Safety Report 8946786 (Version 2)
Quarter: 2014Q2

REPORT INFORMATION
  Report Type: Spontaneous
  Country: US (occurrence: US)
  Receive Date: 20121205
  Receipt Date: 20140513
  Transmission Date: 20141212
  Serious: Yes (Death, Hospitalization)
  Sender: FDA-Public Use
  Company Number: US-GLAXOSMITHKLINE-A0785189A

PATIENT
  Age: 66 Year
  Sex: Male

DRUGS (1)
  1. AVANDAMET [Suspect]
     Indication: DIABETES MELLITUS
     Route: 048
     Dates: start: 2003, end: 20040323

REACTIONS (4)
  - Sudden cardiac death [Fatal]
  - Myocardial infarction [Unknown]
  - Hypertensive heart disease [Unknown]
  - Arteriosclerosis [Unknown]
